FAERS Safety Report 9132429 (Version 1)
Quarter: 2013Q1

REPORT INFORMATION
  Report Type: Spontaneous
  Country: FR (occurrence: FR)
  Receive Date: 20130301
  Receipt Date: 20130301
  Transmission Date: 20140127
  Serious: Yes (Disabling)
  Sender: FDA-Public Use
  Company Number: FR-PFIZER INC-2013070195

PATIENT
  Age: 84 Year
  Sex: Male

DRUGS (3)
  1. TAHOR [Suspect]
     Dosage: UNK
     Route: 048
     Dates: start: 2010
  2. FLUOROURACIL [Suspect]
     Indication: COLON CANCER
     Dosage: 2 G, CYCLIC
     Route: 041
     Dates: start: 20110103, end: 20110711
  3. ELOXATINE [Suspect]
     Indication: COLON CANCER
     Dosage: 152 MG, CYCLIC
     Route: 041
     Dates: start: 20110103, end: 20110711

REACTIONS (1)
  - Neuropathy peripheral [Not Recovered/Not Resolved]
